FAERS Safety Report 20953761 (Version 1)
Quarter: 2022Q2

REPORT INFORMATION
  Report Type: Report from Study
  Country: IT (occurrence: IT)
  Receive Date: 20220613
  Receipt Date: 20220613
  Transmission Date: 20220721
  Serious: Yes (Hospitalization)
  Sender: FDA-Public Use
  Company Number: IT-ABBVIE-22K-083-4429479-00

PATIENT
  Age: 69 Year
  Sex: Male

DRUGS (2)
  1. CARBIDOPA\LEVODOPA [Suspect]
     Active Substance: CARBIDOPA\LEVODOPA
     Indication: Parkinson^s disease
     Dosage: DAILY DOSE: 1592 MG; PUMP SETTING: MD: 13,2 AND 3 CR: 3,8, ED: 2,8
     Route: 050
     Dates: start: 20170717
  2. CARBIDOPA\LEVODOPA [Suspect]
     Active Substance: CARBIDOPA\LEVODOPA

REACTIONS (7)
  - Ligament operation [Recovered/Resolved]
  - Bacterial infection [Unknown]
  - Muscle atrophy [Unknown]
  - Anuria [Unknown]
  - Pelvic abscess [Unknown]
  - Intervertebral disc degeneration [Unknown]
  - Diverticulitis [Unknown]

NARRATIVE: CASE EVENT DATE: 20220301
